FAERS Safety Report 9019514 (Version 1)
Quarter: 2013Q1

REPORT INFORMATION
  Report Type: Report from Study
  Country: US (occurrence: US)
  Receive Date: 20130118
  Receipt Date: 20130118
  Transmission Date: 20140127
  Serious: Yes (Other)
  Sender: FDA-Public Use
  Company Number: US-TEVA-381021USA

PATIENT
  Age: 58 None
  Sex: Female
  Weight: 93.52 kg

DRUGS (10)
  1. TRAMADOL [Suspect]
     Indication: PAIN
     Dosage: 200 MILLIGRAM DAILY; AS NECESSARY
  2. REMICADE [Suspect]
     Indication: RHEUMATOID ARTHRITIS
     Dosage: EVERY 8 WEEKS
     Route: 042
     Dates: start: 2006
  3. UNSPECIFIED ANTIBIOTIC [Suspect]
     Indication: GINGIVAL INFECTION
  4. NEXIUM [Concomitant]
  5. DIOVAN [Concomitant]
     Indication: PROPHYLAXIS
     Route: 048
     Dates: start: 2002
  6. PLAQUENIL [Concomitant]
     Indication: RHEUMATOID ARTHRITIS
     Route: 048
  7. TREXIMET [Concomitant]
     Indication: MIGRAINE
     Route: 048
  8. METHOTREXATE [Concomitant]
     Indication: RHEUMATOID ARTHRITIS
     Route: 048
     Dates: start: 2005
  9. FUROSEMIDE [Concomitant]
     Dosage: 40 MILLIGRAM DAILY;
  10. PLAQUENIL [Concomitant]
     Indication: PRODUCT USED FOR UNKNOWN INDICATION

REACTIONS (21)
  - Rheumatoid arthritis [Not Recovered/Not Resolved]
  - Osteoarthritis [Not Recovered/Not Resolved]
  - Spinal column stenosis [Not Recovered/Not Resolved]
  - Ligament rupture [Not Recovered/Not Resolved]
  - Oedema [Not Recovered/Not Resolved]
  - Gastrointestinal motility disorder [Not Recovered/Not Resolved]
  - Gingival bleeding [Unknown]
  - Adverse drug reaction [Not Recovered/Not Resolved]
  - Sinus disorder [Not Recovered/Not Resolved]
  - Gingival infection [Not Recovered/Not Resolved]
  - Anaemia [Not Recovered/Not Resolved]
  - Fungal infection [Unknown]
  - Sleep apnoea syndrome [Not Recovered/Not Resolved]
  - Depression [Not Recovered/Not Resolved]
  - Visual acuity reduced [Not Recovered/Not Resolved]
  - Anxiety [Not Recovered/Not Resolved]
  - Gastrointestinal disorder [Not Recovered/Not Resolved]
  - Migraine [Not Recovered/Not Resolved]
  - Dry mouth [Not Recovered/Not Resolved]
  - Rash [Not Recovered/Not Resolved]
  - Dyspnoea [Not Recovered/Not Resolved]
